FAERS Safety Report 19298237 (Version 1)
Quarter: 2021Q2

REPORT INFORMATION
  Report Type: Spontaneous
  Country: US (occurrence: US)
  Receive Date: 20210525
  Receipt Date: 20210525
  Transmission Date: 20210717
  Serious: No
  Sender: FDA-Public Use
  Company Number: US-SUN PHARMACEUTICAL INDUSTRIES LTD-2021R1-283121

PATIENT
  Sex: Male

DRUGS (2)
  1. ABSORICA LD [Suspect]
     Active Substance: ISOTRETINOIN
     Dosage: UNK (SLOW DOWN)
     Route: 065
  2. ABSORICA LD [Suspect]
     Active Substance: ISOTRETINOIN
     Indication: PRODUCT USED FOR UNKNOWN INDICATION
     Dosage: UNK
     Route: 065
     Dates: start: 20200827

REACTIONS (2)
  - Adverse reaction [Unknown]
  - Medication error [Unknown]
